FAERS Safety Report 15885944 (Version 1)
Quarter: 2019Q1

REPORT INFORMATION
  Report Type: Spontaneous
  Country: US (occurrence: US)
  Receive Date: 20190129
  Receipt Date: 20190129
  Transmission Date: 20190417
  Serious: No
  Sender: FDA-Public Use
  Company Number: US-009507513-1901USA006178

PATIENT
  Age: 55 Year
  Sex: Female

DRUGS (8)
  1. TESSALON [Concomitant]
     Active Substance: BENZONATATE
  2. ZOFRAN [Concomitant]
     Active Substance: ONDANSETRON HYDROCHLORIDE
  3. EMEND [Suspect]
     Active Substance: APREPITANT
     Indication: NAUSEA
     Dosage: UNK
     Route: 042
     Dates: start: 20190116, end: 20190116
  4. XANAX [Concomitant]
     Active Substance: ALPRAZOLAM
  5. OXYCODONE [Concomitant]
     Active Substance: OXYCODONE
  6. CELEXA [Concomitant]
     Active Substance: CITALOPRAM HYDROBROMIDE
  7. EMEND [Suspect]
     Active Substance: APREPITANT
     Indication: VOMITING
  8. FLEXERIL [Concomitant]
     Active Substance: CYCLOBENZAPRINE HYDROCHLORIDE

REACTIONS (2)
  - Flushing [Recovered/Resolved]
  - Hypotension [Recovered/Resolved]

NARRATIVE: CASE EVENT DATE: 20190116
